FAERS Safety Report 24003387 (Version 2)
Quarter: 2024Q3

REPORT INFORMATION
  Report Type: Report from Study
  Country: GB (occurrence: GB)
  Receive Date: 20240624
  Receipt Date: 20240917
  Transmission Date: 20241017
  Serious: Yes (Hospitalization, Other)
  Sender: ABBVIE
  Company Number: GB-ABBVIE-5810215

PATIENT
  Sex: Female

DRUGS (1)
  1. RINVOQ [Suspect]
     Active Substance: UPADACITINIB
     Indication: Crohn^s disease
     Route: 048
     Dates: start: 202309, end: 2024

REACTIONS (4)
  - Tonsillectomy [Unknown]
  - Haemorrhage [Unknown]
  - Infection [Unknown]
  - Epilepsy [Unknown]

NARRATIVE: CASE EVENT DATE: 20240101
